FAERS Safety Report 24996298 (Version 10)
Quarter: 2025Q3

REPORT INFORMATION
  Report Type: Spontaneous
  Country: US (occurrence: US)
  Receive Date: 20250221
  Receipt Date: 20250911
  Transmission Date: 20251021
  Serious: Yes (Other)
  Sender: PFIZER
  Company Number: US-PFIZER INC-202500019687

PATIENT
  Age: 45 Year
  Sex: Female
  Weight: 74.6 kg

DRUGS (10)
  1. TUKYSA [Suspect]
     Active Substance: TUCATINIB
     Indication: Breast cancer female
     Dosage: TAKE WITH OR WITHOUT FOOD, SWALLOW WHOLE/150 MG TWICE DAILY
     Route: 048
  2. COMPAZINE [Concomitant]
     Active Substance: PROCHLORPERAZINE MALEATE
     Indication: Nausea
     Route: 048
     Dates: start: 20250123
  3. COMPAZINE [Concomitant]
     Active Substance: PROCHLORPERAZINE MALEATE
     Indication: Vomiting
     Route: 048
     Dates: start: 20250502
  4. OXYGEN [Concomitant]
     Active Substance: OXYGEN
     Indication: Dyspnoea
     Route: 045
  5. POTASSIUM CHLORIDE [Concomitant]
     Active Substance: POTASSIUM CHLORIDE
     Dosage: 10 MEQ, DAILY
     Route: 048
  6. SENNA PLUS [Concomitant]
     Active Substance: DOCUSATE SODIUM\SENNOSIDES\SENNOSIDES A AND B
     Dosage: 1 DF, DAILY
     Route: 048
  7. VITAMIN D3 [Concomitant]
     Active Substance: CHOLECALCIFEROL
     Dosage: 1000 IU, DAILY
     Route: 048
  8. XELODA [Concomitant]
     Active Substance: CAPECITABINE
     Indication: Nausea
     Route: 048
  9. ZOLOFT [Concomitant]
     Active Substance: SERTRALINE HYDROCHLORIDE
     Dosage: 150 MG, DAILY
     Route: 048
  10. ZOLOFT [Concomitant]
     Active Substance: SERTRALINE HYDROCHLORIDE
     Dosage: 100 MG, DAILY
     Route: 048
     Dates: start: 20250502

REACTIONS (6)
  - Breast cancer recurrent [Unknown]
  - Metastases to central nervous system [Not Recovered/Not Resolved]
  - Tooth extraction [Unknown]
  - Somnolence [Unknown]
  - Fatigue [Unknown]
  - Off label use [Unknown]
